FAERS Safety Report 7506843-X (Version None)
Quarter: 2011Q2

REPORT INFORMATION
  Report Type: 
  Country: None (occurrence: None)
  Receive Date: 20110526
  Receipt Date: 20110524
  Transmission Date: 20111010
  Serious: Yes (Hospitalization)
  Sender: FDA-Public Use
  Company Number: B0718303A

PATIENT
  Sex: Female
  Weight: 71 kg

DRUGS (16)
  1. ALLOPURINOL [Concomitant]
     Route: 048
  2. ACYCLOVIR [Concomitant]
     Route: 048
  3. LERCANIDIPINE [Concomitant]
     Route: 048
  4. CHLORAMBUCIL [Suspect]
     Dates: start: 20110221
  5. ARANESP [Concomitant]
     Route: 058
  6. CANDESARTAN CILEXETIL/HYDROCHLOROTHIAZIDE [Concomitant]
     Route: 048
  7. TOTALIP [Concomitant]
     Route: 048
  8. LANSOX [Concomitant]
     Route: 048
  9. BENEXOL [Concomitant]
     Route: 048
  10. MYCOSTATIN [Concomitant]
     Route: 002
  11. DOXAZOSIN MESYLATE [Concomitant]
     Route: 048
  12. FOLINA [Concomitant]
     Route: 048
  13. CALCIUM CARBONATE [Concomitant]
     Route: 048
  14. MOVIPREP [Concomitant]
     Indication: CONSTIPATION
     Route: 048
  15. COLECALCIFEROL [Concomitant]
     Indication: CONSTIPATION
     Route: 048
  16. PREDNISONE [Concomitant]
     Dosage: 25MG TWICE PER DAY
     Route: 048

REACTIONS (1)
  - ANAEMIA HAEMOLYTIC AUTOIMMUNE [None]
